FAERS Safety Report 8397707-0 (Version None)
Quarter: 2012Q2

REPORT INFORMATION
  Report Type: 
  Country: None (occurrence: None)
  Receive Date: 20120531
  Receipt Date: 20120522
  Transmission Date: 20120825
  Serious: Yes (Hospitalization)
  Sender: FDA-Public Use
  Company Number: US-BAYER-2011-120470

PATIENT
  Age: 42 Year
  Sex: Female
  Weight: 69.841 kg

DRUGS (16)
  1. ALLEGRA-D 12 HOUR [Concomitant]
     Dosage: UNK UNK, BID
  2. METOPROLOL TARTRATE [Concomitant]
     Dosage: 25 MG, QD
  3. NORTRIPTYLINE HYDROCHLORIDE [Concomitant]
     Dosage: 25 MG, QD
  4. TOPIRAMATE [Concomitant]
     Dosage: 100 MG, UNK
  5. YAZ [Suspect]
     Indication: ACNE
     Dosage: UNK
     Dates: start: 20071001, end: 20091001
  6. YAZ [Suspect]
     Indication: PREMENSTRUAL SYNDROME
  7. CALCIUM CARBONATE [Concomitant]
     Dosage: ONE PILL, QD
  8. CYMBALTA [Concomitant]
     Dosage: 30 MG, QD
  9. LEVOXYL [Concomitant]
     Dosage: 0.88 MG, QD
  10. PHENERGAN [Concomitant]
     Dosage: 25 MG, QD
  11. PREDNISONE TAB [Concomitant]
     Dosage: 10 MG, UNK
  12. ALPRAZOLAM [Concomitant]
     Dosage: 0.5 MG, QD
  13. BISMUTH SUBSALICYLATE [Concomitant]
  14. RIZATRIPTAN BENZOATE [Concomitant]
     Dosage: 10 MG, UNK
  15. YAZ [Suspect]
     Indication: CONTRACEPTION
     Route: 048
  16. MULTI-VITAMIN [Concomitant]
     Dosage: UNK UNK, QD

REACTIONS (5)
  - COLITIS ISCHAEMIC [None]
  - PAIN [None]
  - EMOTIONAL DISTRESS [None]
  - THROMBOSIS [None]
  - ANXIETY [None]
